FAERS Safety Report 8366392-6 (Version None)
Quarter: 2012Q2

REPORT INFORMATION
  Report Type: 
  Country: None (occurrence: None)
  Receive Date: 20120517
  Receipt Date: 20120504
  Transmission Date: 20120825
  Serious: Yes (Disabling)
  Sender: FDA-Public Use
  Company Number: FR-PFIZER INC-2012116739

PATIENT
  Age: 73 Year
  Sex: Female

DRUGS (8)
  1. METOPROLOL [Suspect]
     Indication: PRODUCT USED FOR UNKNOWN INDICATION
     Dosage: 100 MG, DAILY
     Route: 048
     Dates: end: 20101201
  2. NEXIUM [Concomitant]
     Dosage: UNK
  3. ALDACTONE [Suspect]
     Indication: PRODUCT USED FOR UNKNOWN INDICATION
     Dosage: UNK;DAILY
     Route: 048
  4. TEMESTA [Concomitant]
     Dosage: UNK
  5. CORDARONE [Suspect]
     Dosage: 100 MG, DAILY
     Route: 048
     Dates: end: 20101201
  6. COUMADIN [Suspect]
     Indication: PRODUCT USED FOR UNKNOWN INDICATION
     Dosage: UNK
     Route: 048
     Dates: end: 20101201
  7. DUPHALAC [Concomitant]
     Dosage: UNK
  8. LASIX [Suspect]
     Indication: PRODUCT USED FOR UNKNOWN INDICATION
     Dosage: 100 MG, DAILY
     Route: 048

REACTIONS (2)
  - PULMONARY FIBROSIS [None]
  - DYSPNOEA [None]
